FAERS Safety Report 8774788 (Version 1)
Quarter: 2012Q4

REPORT INFORMATION
  Report Type: 
  Country: US (occurrence: US)
  Receive Date: 20120910
  Receipt Date: 20120910
  Transmission Date: 20130627
  Serious: No
  Sender: FDA-Public Use
  Company Number: US-PFIZER INC-2012221450

PATIENT
  Age: 61 Year
  Sex: Female
  Weight: 68.93 kg

DRUGS (2)
  1. ATORVASTATIN CALCIUM [Suspect]
     Indication: BLOOD CHOLESTEROL INCREASED
     Dosage: 10 mg, daily
     Dates: start: 201207, end: 20120905
  2. DIOVAN [Concomitant]
     Indication: HYPERTENSION
     Dosage: 80 mg, UNK

REACTIONS (1)
  - Headache [Recovered/Resolved]
